FAERS Safety Report 15686668 (Version 1)
Quarter: 2018Q4

REPORT INFORMATION
  Report Type: Spontaneous
  Country: JP (occurrence: JP)
  Receive Date: 20181204
  Receipt Date: 20181204
  Transmission Date: 20190205
  Serious: Yes (Hospitalization)
  Sender: FDA-Public Use
  Company Number: JP-NAPPMUNDI-GBR-2018-0062087

PATIENT
  Age: 87 Year
  Sex: Female

DRUGS (2)
  1. NORSPAN [Suspect]
     Active Substance: BUPRENORPHINE
     Indication: SPINAL COLUMN STENOSIS
     Dosage: 15 MCG, Q1H (STRENGTH 5MG AND 10MG)
     Route: 062
     Dates: end: 20181126
  2. NORSPAN [Suspect]
     Active Substance: BUPRENORPHINE
     Dosage: 5 MCG, Q1H (STRENGHT 5MG)
     Route: 062
     Dates: start: 201808

REACTIONS (2)
  - Application site pruritus [Unknown]
  - Unevaluable event [Unknown]
